FAERS Safety Report 10068743 (Version 3)
Quarter: 2015Q1

REPORT INFORMATION
  Report Type: Spontaneous
  Country: US (occurrence: US)
  Receive Date: 20140409
  Receipt Date: 20150304
  Transmission Date: 20150720
  Serious: Yes (Other)
  Sender: FDA-Public Use
  Company Number: US-BAYER-2014-052353

PATIENT
  Sex: Female
  Weight: 73.47 kg

DRUGS (4)
  1. COPAXONE [Suspect]
     Active Substance: GLATIRAMER ACETATE
     Dosage: UNK
     Dates: start: 2009, end: 2013
  2. BETASERON [Suspect]
     Active Substance: INTERFERON BETA-1B
     Indication: MULTIPLE SCLEROSIS
     Dosage: UNK
     Dates: start: 2004, end: 2009
  3. XANAX [Suspect]
     Active Substance: ALPRAZOLAM
  4. AVONEX [Suspect]
     Active Substance: INTERFERON BETA-1A
     Dosage: 30 ?G, EVERY WEEK
     Route: 030
     Dates: start: 20020501, end: 20130603

REACTIONS (7)
  - Injection site necrosis [None]
  - Skin exfoliation [None]
  - Influenza like illness [None]
  - Injection site discolouration [None]
  - Skin reaction [None]
  - Panic attack [Not Recovered/Not Resolved]
  - Drug ineffective [None]
